FAERS Safety Report 17597192 (Version 1)
Quarter: 2020Q1

REPORT INFORMATION
  Report Type: Spontaneous
  Country: FR (occurrence: FR)
  Receive Date: 20200330
  Receipt Date: 20200330
  Transmission Date: 20200409
  Serious: Yes (Other)
  Sender: FDA-Public Use
  Company Number: FR-SUN PHARMACEUTICAL INDUSTRIES LTD-2020RR-242099

PATIENT
  Age: 44 Year
  Sex: Male
  Weight: 126 kg

DRUGS (4)
  1. LERCAN [Suspect]
     Active Substance: LERCANIDIPINE
     Indication: HYPERTENSION
     Dosage: INCONNUE
     Route: 048
  2. TRAMADOL. [Suspect]
     Active Substance: TRAMADOL
     Indication: PAIN
     Dosage: INCONNUE
     Route: 048
  3. TALTZ [Suspect]
     Active Substance: IXEKIZUMAB
     Indication: PSORIASIS
     Dosage: 1 DOSAGE FORM, WEEKLY
     Route: 058
     Dates: start: 201802, end: 20191129
  4. COLCHIMAX, COMPRIME PELLICULE [Suspect]
     Active Substance: COLCHICINE\OPIUM\TIEMONIUM METHYLSULFATE
     Indication: GOUT
     Dosage: INCONNUE
     Route: 048

REACTIONS (1)
  - Depression [Recovered/Resolved]

NARRATIVE: CASE EVENT DATE: 201905
